FAERS Safety Report 10161784 (Version 1)
Quarter: 2014Q2

REPORT INFORMATION
  Report Type: Spontaneous
  Country: US (occurrence: None)
  Receive Date: 20140508
  Receipt Date: 20140508
  Transmission Date: 20141212
  Serious: No
  Sender: FDA-Public Use
  Company Number: None

PATIENT
  Age: 63 Year
  Sex: Male
  Weight: 57.61 kg

DRUGS (1)
  1. LUPRON [Suspect]
     Indication: PROSTATE CANCER
     Dates: start: 20140502, end: 20140502

REACTIONS (10)
  - Swelling face [None]
  - Rash [None]
  - Skin disorder [None]
  - Hyperaesthesia [None]
  - Erythema [None]
  - Injection site rash [None]
  - Headache [None]
  - Nausea [None]
  - Rash [None]
  - No reaction on previous exposure to drug [None]
